FAERS Safety Report 18519228 (Version 2)
Quarter: 2021Q1

REPORT INFORMATION
  Report Type: Spontaneous
  Country: DE (occurrence: DE)
  Receive Date: 20201118
  Receipt Date: 20210224
  Transmission Date: 20210419
  Serious: Yes (Other)
  Sender: FDA-Public Use
  Company Number: DE-BIOGEN-2020BI00947938

PATIENT
  Age: 39 Year
  Sex: Female

DRUGS (9)
  1. FAMPYRA [Suspect]
     Active Substance: DALFAMPRIDINE
     Indication: NEUROPATHY PERIPHERAL
     Route: 065
     Dates: start: 20130315, end: 20170919
  2. L?THYROXIN [Concomitant]
     Active Substance: LEVOTHYROXINE SODIUM
     Indication: HYPOTHYROIDISM
     Route: 065
     Dates: start: 20040615
  3. SPASMOLYT [Concomitant]
     Active Substance: TROSPIUM CHLORIDE
     Indication: BLADDER IRRITATION
     Route: 065
     Dates: start: 20150615
  4. TYSABRI [Suspect]
     Active Substance: NATALIZUMAB
     Route: 065
     Dates: start: 20130311, end: 20170824
  5. FOLIO FORTE [Concomitant]
     Active Substance: FOLIC ACID\VITAMINS
     Indication: PREGNANCY
     Route: 065
     Dates: start: 20170920
  6. TYSABRI [Suspect]
     Active Substance: NATALIZUMAB
     Indication: RELAPSING-REMITTING MULTIPLE SCLEROSIS
     Route: 042
  7. METHIONIN [Concomitant]
     Active Substance: METHIONINE
     Indication: URINARY TRACT DISORDER
     Route: 065
     Dates: start: 20150615
  8. MAGNESIUM [Concomitant]
     Active Substance: MAGNESIUM
     Indication: GROWING PAINS
     Route: 065
     Dates: start: 20170920
  9. NAUSEMA [Concomitant]
     Indication: PREGNANCY
     Route: 065
     Dates: start: 20170920

REACTIONS (4)
  - Haemorrhage in pregnancy [Unknown]
  - Abortion spontaneous [Recovered/Resolved]
  - Maternal exposure during pregnancy [Recovered/Resolved]
  - Muscle spasms [Unknown]

NARRATIVE: CASE EVENT DATE: 20170923
